FAERS Safety Report 17009346 (Version 1)
Quarter: 2019Q4

REPORT INFORMATION
  Report Type: Report from Study
  Country: FR (occurrence: FR)
  Receive Date: 20191108
  Receipt Date: 20191108
  Transmission Date: 20200122
  Serious: Yes (Congenital Anomaly)
  Sender: FDA-Public Use
  Company Number: FR-TEVA-2019-FR-1135549

PATIENT

DRUGS (3)
  1. BLEOMYCIN [Suspect]
     Active Substance: BLEOMYCIN SULFATE
     Route: 064
  2. VINBLASTINE [Suspect]
     Active Substance: VINBLASTINE
     Route: 064
  3. EPIRUBICIN [Suspect]
     Active Substance: EPIRUBICIN
     Route: 064

REACTIONS (5)
  - Congenital nose malformation [Unknown]
  - Congenital tongue anomaly [Unknown]
  - Dysmorphism [Unknown]
  - Hypertelorism of orbit [Unknown]
  - Foetal exposure during pregnancy [Unknown]
